FAERS Safety Report 19609520 (Version 1)
Quarter: 2021Q3

REPORT INFORMATION
  Report Type: Spontaneous
  Country: FR (occurrence: FR)
  Receive Date: 20210726
  Receipt Date: 20210726
  Transmission Date: 20211014
  Serious: Yes (Life-Threatening)
  Sender: FDA-Public Use
  Company Number: FR-ACCORD-232936

PATIENT
  Age: 87 Year
  Sex: Male
  Weight: 69.6 kg

DRUGS (10)
  1. ASPEGIC (ACETYLSALICYLIC ACID) [Interacting]
     Active Substance: ASPIRIN
     Indication: CEREBROVASCULAR ACCIDENT
     Dosage: 1 G POWDER, INJECTION
     Route: 042
     Dates: start: 20210605, end: 20210605
  2. LEVETIRACETAM. [Concomitant]
     Active Substance: LEVETIRACETAM
     Route: 048
  3. PANTOPRAZOLE [Concomitant]
     Active Substance: PANTOPRAZOLE
     Route: 048
  4. CLOPIDOGREL [Suspect]
     Active Substance: CLOPIDOGREL BISULFATE
     Indication: CARDIOVASCULAR EVENT PROPHYLAXIS
     Route: 048
     Dates: end: 20210610
  5. CARVEDILOL/CARVEDILOL HYDROCHLODRIDE [Concomitant]
     Active Substance: CARVEDILOL HYDROCHLORIDE
     Route: 048
  6. LOVENOX [Interacting]
     Active Substance: ENOXAPARIN SODIUM
     Indication: CARDIOVASCULAR EVENT PROPHYLAXIS
     Dosage: 4000 IU ANTI?XA / 0.4 ML
     Route: 058
     Dates: start: 20210605, end: 20210610
  7. ATORVASTATIN [Concomitant]
     Active Substance: ATORVASTATIN
     Route: 048
  8. TRINITRINE [Concomitant]
     Active Substance: NITROGLYCERIN
     Route: 062
  9. PERINDOPRIL [Concomitant]
     Active Substance: PERINDOPRIL
     Route: 048
  10. EZETIMIBE. [Concomitant]
     Active Substance: EZETIMIBE
     Route: 048

REACTIONS (2)
  - Haemorrhagic transformation stroke [Not Recovered/Not Resolved]
  - Drug interaction [Unknown]
